FAERS Safety Report 4532158-8 (Version None)
Quarter: 2004Q4

REPORT INFORMATION
  Report Type: 
  Country: None (occurrence: None)
  Receive Date: 20041217
  Receipt Date: 20041210
  Transmission Date: 20050328
  Serious: Yes (Other)
  Sender: FDA-Public Use
  Company Number: 200413371GDS

PATIENT
  Age: 12 Year
  Sex: Male

DRUGS (1)
  1. CIPROFLOXACIN [Suspect]
     Indication: INFECTION PROPHYLAXIS
     Dosage: 500 MG , TOTAL DAILY,ORAL
     Route: 048
     Dates: start: 20041130

REACTIONS (6)
  - EYELID OEDEMA [None]
  - EYELIDS PRURITUS [None]
  - HYPERSENSITIVITY [None]
  - PERIORBITAL DISORDER [None]
  - PERIORBITAL OEDEMA [None]
  - PRURITUS [None]
